FAERS Safety Report 8182837-9 (Version None)
Quarter: 2012Q1

REPORT INFORMATION
  Report Type: 
  Country: None (occurrence: None)
  Receive Date: 20120305
  Receipt Date: 20120224
  Transmission Date: 20120608
  Serious: Yes (Hospitalization)
  Sender: FDA-Public Use
  Company Number: JP-US-EMD SERONO, INC.-7115100

PATIENT
  Age: 6 Year
  Sex: Female
  Weight: 16.6 kg

DRUGS (1)
  1. SAIZEN [Suspect]
     Indication: PRODUCT USED FOR UNKNOWN INDICATION
     Route: 058
     Dates: start: 20111001

REACTIONS (1)
  - SYSTEMIC LUPUS ERYTHEMATOSUS [None]
